FAERS Safety Report 6167096-0 (Version None)
Quarter: 2009Q2

REPORT INFORMATION
  Report Type: 
  Country: None (occurrence: None)
  Receive Date: 20090423
  Receipt Date: 20090423
  Transmission Date: 20091009
  Serious: No
  Sender: FDA-Public Use
  Company Number: None

PATIENT
  Sex: Male
  Weight: 66.82 kg

DRUGS (4)
  1. VARENICLINE STARTING MONTH PAK [Suspect]
     Dosage: 1 TREATMENT AS DIRECTED ORAL
     Route: 048
     Dates: start: 20090323, end: 20090422
  2. MULTIVITAMIN THERAPEUTIC (THERAPEUTIC MULTIVITAMINS) [Concomitant]
  3. OXYCODONE HCL [Concomitant]
  4. VIAGRA [Concomitant]

REACTIONS (1)
  - ANXIETY [None]
